FAERS Safety Report 25539781 (Version 1)
Quarter: 2025Q3

REPORT INFORMATION
  Report Type: Spontaneous
  Country: US (occurrence: None)
  Receive Date: 20250710
  Receipt Date: 20250710
  Transmission Date: 20251020
  Serious: Yes (Disabling)
  Sender: FDA-CTU
  Company Number: None

PATIENT
  Age: 44 Year
  Sex: Female
  Weight: 67.5 kg

DRUGS (1)
  1. LEVOFLOXACIN [Suspect]
     Active Substance: LEVOFLOXACIN
     Indication: Vaginal infection
     Dates: start: 20240812, end: 20240816

REACTIONS (13)
  - Paraesthesia [None]
  - Paraesthesia [None]
  - Depression [None]
  - Suicidal ideation [None]
  - Anxiety [None]
  - Neuralgia [None]
  - Electric shock sensation [None]
  - Bladder pain [None]
  - Urinary incontinence [None]
  - Genital pain [None]
  - Peripheral swelling [None]
  - Tendon pain [None]
  - Temperature intolerance [None]

NARRATIVE: CASE EVENT DATE: 20240820
